FAERS Safety Report 24286241 (Version 1)
Quarter: 2024Q3

REPORT INFORMATION
  Report Type: Spontaneous
  Country: CA (occurrence: CA)
  Receive Date: 20240905
  Receipt Date: 20240905
  Transmission Date: 20241016
  Serious: Yes (Other)
  Sender: PFIZER
  Company Number: CA-PFIZER INC-202400248480

PATIENT
  Age: 61 Year
  Sex: Female

DRUGS (3)
  1. MIDAZOLAM [Suspect]
     Active Substance: MIDAZOLAM
     Dosage: UNK
  2. FLUMAZENIL [Concomitant]
     Active Substance: FLUMAZENIL
     Dosage: UNK
     Route: 042
  3. VERSED [Concomitant]
     Active Substance: MIDAZOLAM HYDROCHLORIDE
     Dosage: UNK
     Route: 030

REACTIONS (4)
  - Depressed level of consciousness [Unknown]
  - Respiratory distress [Unknown]
  - Dyspnoea [Unknown]
  - Oxygen saturation decreased [Unknown]
